FAERS Safety Report 8188987-5 (Version None)
Quarter: 2012Q1

REPORT INFORMATION
  Report Type: 
  Country: None (occurrence: None)
  Receive Date: 20120307
  Receipt Date: 20120222
  Transmission Date: 20120608
  Serious: Yes (Other)
  Sender: FDA-Public Use
  Company Number: TR-RANBAXY-2012R1-53199

PATIENT
  Age: 18 Year
  Sex: Female

DRUGS (1)
  1. SERTRALINE HYDROCHLORIDE [Suspect]
     Indication: DEPRESSION
     Dosage: 50MG/DAY
     Route: 065

REACTIONS (1)
  - ECCHYMOSIS [None]
